FAERS Safety Report 7703576-1 (Version None)
Quarter: 2011Q3

REPORT INFORMATION
  Report Type: 
  Country: None (occurrence: None)
  Receive Date: 20110823
  Receipt Date: 20110815
  Transmission Date: 20111222
  Serious: Yes (Hospitalization)
  Sender: FDA-Public Use
  Company Number: PHHY2011CN74101

PATIENT
  Age: 3 Year
  Sex: Male

DRUGS (3)
  1. VALPROATE SODIUM [Concomitant]
     Indication: EPILEPSY
     Dosage: UNK UKN, UNK
  2. TOPIRAMATE [Concomitant]
     Indication: EPILEPSY
     Dosage: UNK UKN, UNK
  3. CARBAMAZEPINE [Suspect]
     Indication: CONVULSION
     Dosage: UNK UKN, UNK

REACTIONS (41)
  - HYPERSENSITIVITY [None]
  - PLATELET COUNT INCREASED [None]
  - BLOOD ALBUMIN DECREASED [None]
  - INCREASED UPPER AIRWAY SECRETION [None]
  - GENERALISED ERYTHEMA [None]
  - EYELID EXFOLIATION [None]
  - STAPHYLOCOCCUS TEST POSITIVE [None]
  - DYSPNOEA [None]
  - PYREXIA [None]
  - DRUG ERUPTION [None]
  - ALANINE AMINOTRANSFERASE INCREASED [None]
  - ASPARTATE AMINOTRANSFERASE INCREASED [None]
  - MULTI-ORGAN FAILURE [None]
  - EYELID OEDEMA [None]
  - FEELING ABNORMAL [None]
  - BLISTER [None]
  - SKIN EROSION [None]
  - ERYTHEMA OF EYELID [None]
  - ORAL MUCOSA EROSION [None]
  - LIP HAEMORRHAGE [None]
  - C-REACTIVE PROTEIN INCREASED [None]
  - HERPES ZOSTER [None]
  - RASH [None]
  - EFFUSION [None]
  - TENDERNESS [None]
  - NEUTROPHIL COUNT INCREASED [None]
  - PROTEIN TOTAL DECREASED [None]
  - BREATH SOUNDS ABNORMAL [None]
  - WHEEZING [None]
  - SKIN ATROPHY [None]
  - SEPSIS [None]
  - SKIN INJURY [None]
  - ERYTHEMA MULTIFORME [None]
  - LYMPHOCYTE COUNT INCREASED [None]
  - ERYTHEMA [None]
  - NIKOLSKY'S SIGN [None]
  - RESPIRATORY DEPRESSION [None]
  - TOXIC EPIDERMAL NECROLYSIS [None]
  - CONJUNCTIVAL HYPERAEMIA [None]
  - CHAPPED LIPS [None]
  - VULVAR EROSION [None]
